FAERS Safety Report 19167857 (Version 1)
Quarter: 2021Q2

REPORT INFORMATION
  Report Type: Spontaneous
  Country: US (occurrence: US)
  Receive Date: 20210421
  Receipt Date: 20210421
  Transmission Date: 20210717
  Serious: No
  Sender: FDA-Public Use
  Company Number: None

PATIENT
  Age: 66 Year
  Sex: Female
  Weight: 78.7 kg

DRUGS (4)
  1. ONDANSETRON HCL (ZOFRAN) [Suspect]
     Active Substance: ONDANSETRON HYDROCHLORIDE
     Dates: end: 20201015
  2. FOSAPREPITANT DIMEGLUMINE. [Suspect]
     Active Substance: FOSAPREPITANT DIMEGLUMINE
     Dates: end: 20201015
  3. OLANZAPINE. [Suspect]
     Active Substance: OLANZAPINE
     Dates: end: 20201018
  4. DEXAMETHASONE. [Suspect]
     Active Substance: DEXAMETHASONE
     Dates: end: 20201018

REACTIONS (3)
  - Refusal of treatment by patient [None]
  - Body temperature increased [None]
  - Neutrophil count decreased [None]

NARRATIVE: CASE EVENT DATE: 20201021
